FAERS Safety Report 26174011 (Version 2)
Quarter: 2025Q4

REPORT INFORMATION
  Report Type: Spontaneous
  Country: CN (occurrence: CN)
  Receive Date: 20251218
  Receipt Date: 20251229
  Transmission Date: 20260118
  Serious: Yes (Other)
  Sender: ASTELLAS
  Company Number: CN-ASTELLAS-2025-AER-069519

PATIENT
  Age: 60 Year
  Sex: Male

DRUGS (3)
  1. PROGRAF [Suspect]
     Active Substance: TACROLIMUS
     Indication: Renal transplant
     Dosage: 1MG IN THE MORNING AND 1MG IN THE EVENING
     Route: 048
     Dates: start: 200805
  2. PROGRAF [Suspect]
     Active Substance: TACROLIMUS
     Dosage: 1.5 MG PER DAY (TAKES A MIX OF 1 MG STRENGTH AND 0.5 MG STRENGTH BUT USUALLY TAKES THE 1 MG STRENGTH
     Route: 048
  3. PROGRAF [Suspect]
     Active Substance: TACROLIMUS
     Indication: Renal transplant
     Dosage: 1.5 MG PER DAY (TAKES A MIX OF 1 MG STRENGTH AND 0.5 MG STRENGTH BUT USUALLY TAKES THE 1 MG STRENGTH
     Route: 048
     Dates: start: 200805

REACTIONS (3)
  - Complications of transplant surgery [Recovered/Resolved]
  - Chest discomfort [Recovered/Resolved]
  - Heart rate abnormal [Recovered/Resolved]

NARRATIVE: CASE EVENT DATE: 20251001
